FAERS Safety Report 14409249 (Version 1)
Quarter: 2018Q1

REPORT INFORMATION
  Report Type: Spontaneous
  Country: KR (occurrence: KR)
  Receive Date: 20180119
  Receipt Date: 20180119
  Transmission Date: 20180509
  Serious: Yes (Other)
  Sender: FDA-Public Use
  Company Number: KR-ASTRAZENECA-2018SE04700

PATIENT
  Age: 51 Year
  Sex: Female

DRUGS (3)
  1. LETROZOLE. [Concomitant]
     Active Substance: LETROZOLE
     Dates: start: 20171017
  2. ANASTROZOLE. [Suspect]
     Active Substance: ANASTROZOLE
     Route: 048
  3. IBRANCE [Concomitant]
     Active Substance: PALBOCICLIB
     Dates: start: 20171017

REACTIONS (1)
  - Malignant neoplasm progression [Unknown]
